FAERS Safety Report 6451054-2 (Version None)
Quarter: 2009Q4

REPORT INFORMATION
  Report Type: 
  Country: None (occurrence: None)
  Receive Date: 20091123
  Receipt Date: 20091117
  Transmission Date: 20100525
  Serious: Yes (Hospitalization, Disabling)
  Sender: FDA-Public Use
  Company Number: GXKR2009GB08867

PATIENT
  Age: 73 Year
  Sex: Female

DRUGS (10)
  1. OMEPRAZOLE [Suspect]
     Indication: DYSPEPSIA
     Dosage: 20 MG, UNK
     Route: 048
     Dates: start: 20081114, end: 20090710
  2. MOXONIDINE [Suspect]
     Indication: HYPERTENSION
     Dosage: 200 UG, UNK
     Route: 048
     Dates: start: 20081022, end: 20090710
  3. AMLODIPINE [Concomitant]
     Dosage: 5 MG, QD
     Route: 048
  4. ACETYLSALICYLIC ACID [Concomitant]
     Dosage: 75 MG, QD
     Route: 048
  5. ENALAPRIL MALEATE [Concomitant]
     Dosage: 20 MG, BID
     Route: 048
  6. INDAPAMIDE [Concomitant]
     Dosage: 1.5 MG, QD
     Route: 048
  7. LANTUS [Concomitant]
     Dosage: 8 IU, UNK
     Route: 058
  8. LATANOPROST [Concomitant]
     Route: 047
  9. NOVORAPID [Concomitant]
     Dosage: 100 IU
     Route: 058
  10. TIMOPTIC [Concomitant]
     Dosage: 0.5 %, UNK
     Route: 047

REACTIONS (1)
  - RENAL IMPAIRMENT [None]
